FAERS Safety Report 6395145-3 (Version None)
Quarter: 2009Q4

REPORT INFORMATION
  Report Type: 
  Country: None (occurrence: None)
  Receive Date: 20091009
  Receipt Date: 20091005
  Transmission Date: 20100525
  Serious: Yes (Death, Hospitalization)
  Sender: FDA-Public Use
  Company Number: US-GILEAD-2009-0024360

PATIENT
  Sex: Female

DRUGS (12)
  1. LETAIRIS [Suspect]
     Indication: PULMONARY ARTERIAL HYPERTENSION
     Route: 048
     Dates: start: 20090829
  2. COUMADIN [Concomitant]
  3. NORVASC [Concomitant]
  4. LASIX [Concomitant]
  5. ADVAIR DISKUS 100/50 [Concomitant]
  6. SYNTHROID [Concomitant]
  7. FOLIC ACID [Concomitant]
  8. ZOLOFT [Concomitant]
  9. COLACE [Concomitant]
  10. MULTI-VITAMINS [Concomitant]
  11. PRILOSEC [Concomitant]
  12. TACROLIMUS POWDER [Concomitant]

REACTIONS (1)
  - CARDIAC FAILURE CONGESTIVE [None]
